FAERS Safety Report 12765488 (Version 2)
Quarter: 2016Q4

REPORT INFORMATION
  Report Type: Spontaneous
  Country: US (occurrence: US)
  Receive Date: 20160921
  Receipt Date: 20161229
  Transmission Date: 20170207
  Serious: No
  Sender: FDA-Public Use
  Company Number: US-LEO PHARMA-244066

PATIENT
  Age: 63 Year
  Sex: Female

DRUGS (1)
  1. PICATO [Suspect]
     Active Substance: INGENOL MEBUTATE
     Indication: ACTINIC KERATOSIS
     Route: 061
     Dates: start: 20160908, end: 20160910

REACTIONS (6)
  - Application site vesicles [Recovered/Resolved]
  - Application site odour [Recovered/Resolved]
  - Incorrect dose administered [Recovered/Resolved]
  - Application site pain [Recovered/Resolved]
  - Application site discharge [Recovered/Resolved]
  - Drug administration error [Unknown]
